FAERS Safety Report 7534717-7 (Version None)
Quarter: 2011Q2

REPORT INFORMATION
  Report Type: 
  Country: None (occurrence: None)
  Receive Date: 20110609
  Receipt Date: 20110419
  Transmission Date: 20111010
  Serious: Yes (Hospitalization)
  Sender: FDA-Public Use
  Company Number: PHHY2011US34712

PATIENT
  Sex: Male
  Weight: 115 kg

DRUGS (12)
  1. SYNTHROID [Concomitant]
     Indication: HYPOTHYROIDISM
     Dosage: 50 UG, UNK
  2. COREG [Concomitant]
     Indication: HYPERTENSION
     Dosage: 20 MG, QD
  3. AMLODIPINE [Concomitant]
     Indication: HYPERTENSION
     Dosage: 5 MG, UNK
  4. LOSARTAN POTASSIUM [Concomitant]
     Indication: HYPERTENSION
     Dosage: 150 MG, QD
  5. ALLEGRA [Concomitant]
     Indication: SEASONAL ALLERGY
  6. VITAMIN D [Concomitant]
     Indication: SUPPLEMENTATION THERAPY
     Dosage: 1000 IU, QD
  7. TASIGNA [Suspect]
     Indication: CHRONIC MYELOID LEUKAEMIA
     Dosage: 300 MG, BID
     Route: 048
     Dates: start: 20101213, end: 20110128
  8. TRAZODONE HCL [Concomitant]
     Indication: INSOMNIA
     Dosage: 100 MG, QHS
  9. CLARINEX [Concomitant]
     Indication: SEASONAL ALLERGY
  10. KEPPRA [Concomitant]
     Indication: CONVULSION
     Dosage: 1000 MG, BID
  11. ASPIRIN [Concomitant]
     Indication: PROPHYLAXIS
     Dosage: 8 MG, QD
     Route: 048
  12. OMEPRAZOLE [Concomitant]
     Indication: GASTROOESOPHAGEAL REFLUX DISEASE
     Dosage: 20 MG, QD

REACTIONS (1)
  - ATRIAL FIBRILLATION [None]
